FAERS Safety Report 11796132 (Version 2)
Quarter: 2016Q1

REPORT INFORMATION
  Report Type: Report from Study
  Country: DE (occurrence: DE)
  Receive Date: 20151203
  Receipt Date: 20160103
  Transmission Date: 20160525
  Serious: Yes (Hospitalization)
  Sender: FDA-Public Use
  Company Number: DE-ROCHE-1669907

PATIENT
  Age: 52 Year
  Sex: Male
  Weight: 66 kg

DRUGS (15)
  1. ALLOPURINOL. [Concomitant]
     Active Substance: ALLOPURINOL
     Route: 048
     Dates: start: 20151129, end: 20151204
  2. NACL .9% [Concomitant]
     Route: 042
     Dates: start: 20151127, end: 20151201
  3. DOLANTIN [Concomitant]
     Active Substance: MEPERIDINE
     Route: 042
     Dates: start: 20151126, end: 20151126
  4. COTRIM D.S. [Concomitant]
     Active Substance: SULFAMETHOXAZOLE\TRIMETHOPRIM
     Route: 048
     Dates: start: 20151130
  5. ALBUMIN (HUMAN) NOS [Concomitant]
     Active Substance: ALBUMIN (HUMAN)
     Route: 042
     Dates: start: 20151129, end: 20151130
  6. ACICLOVIR [Concomitant]
     Active Substance: ACYCLOVIR
     Route: 048
     Dates: start: 20151204
  7. OBINUTUZUMAB [Suspect]
     Active Substance: OBINUTUZUMAB
     Route: 042
     Dates: start: 20151127, end: 20151127
  8. NACL .9% [Concomitant]
     Route: 042
     Dates: start: 20151126, end: 20151126
  9. OBINUTUZUMAB [Suspect]
     Active Substance: OBINUTUZUMAB
     Indication: CHRONIC LYMPHOCYTIC LEUKAEMIA
     Route: 042
     Dates: start: 20151126
  10. FASTURTEC [Concomitant]
     Active Substance: RASBURICASE
     Route: 042
     Dates: start: 20151127, end: 20151127
  11. SOLU DECORTIN [Concomitant]
     Active Substance: PREDNISOLONE SODIUM SUCCINATE
     Route: 042
     Dates: start: 20151127, end: 20151127
  12. ACICLOVIR [Concomitant]
     Active Substance: ACYCLOVIR
     Route: 048
     Dates: start: 20151203, end: 20151203
  13. RINGER^S [Concomitant]
     Route: 042
     Dates: start: 20151128, end: 20151128
  14. PARACETAMOL [Concomitant]
     Active Substance: ACETAMINOPHEN
     Route: 048
     Dates: start: 20151126, end: 20151127
  15. ALLOPURINOL. [Concomitant]
     Active Substance: ALLOPURINOL
     Route: 048
     Dates: start: 20151126, end: 20151128

REACTIONS (2)
  - Febrile neutropenia [Recovered/Resolved]
  - Infusion related reaction [Recovered/Resolved]

NARRATIVE: CASE EVENT DATE: 20151126
